FAERS Safety Report 7092744-0 (Version None)
Quarter: 2010Q4

REPORT INFORMATION
  Report Type: 
  Country: None (occurrence: None)
  Receive Date: 20101110
  Receipt Date: 20080908
  Transmission Date: 20110411
  Serious: No
  Sender: FDA-Public Use
  Company Number: US-KINGPHARMUSA00001-K200801056

PATIENT
  Sex: Female

DRUGS (2)
  1. CORTISPORIN [Suspect]
     Indication: TYMPANIC MEMBRANE DISORDER
     Route: 001
     Dates: start: 20080904, end: 20080907
  2. AMOXICILLIN [Concomitant]
     Indication: ANTIBIOTIC THERAPY
     Route: 048
     Dates: start: 20080904

REACTIONS (5)
  - EAR DISCOMFORT [None]
  - EAR PAIN [None]
  - FEELING ABNORMAL [None]
  - HEADACHE [None]
  - MUCOSAL INFLAMMATION [None]
